FAERS Safety Report 5916673-8 (Version None)
Quarter: 2008Q4

REPORT INFORMATION
  Report Type: 
  Country: None (occurrence: None)
  Receive Date: 20081013
  Receipt Date: 20080929
  Transmission Date: 20090506
  Serious: Yes (Other)
  Sender: FDA-Public Use
  Company Number: CA-AVENTIS-200819563GDDC

PATIENT
  Age: 60 Year
  Sex: Male
  Weight: 78.6 kg

DRUGS (6)
  1. GLIMEPIRIDE [Suspect]
     Dosage: DOSE: UNK
     Route: 048
     Dates: start: 20060406, end: 20060630
  2. ALTACE [Concomitant]
  3. SYMBICORT [Concomitant]
  4. METFORMIN HCL [Concomitant]
  5. GLYBURIDE [Concomitant]
  6. ZOVIRAX [Concomitant]

REACTIONS (4)
  - BLOOD IMMUNOGLOBULIN G INCREASED [None]
  - HEPATIC ENZYME INCREASED [None]
  - HEPATOTOXICITY [None]
  - NAUSEA [None]
